FAERS Safety Report 7382404-0 (Version None)
Quarter: 2011Q1

REPORT INFORMATION
  Report Type: 
  Country: None (occurrence: None)
  Receive Date: 20110329
  Receipt Date: 20110309
  Transmission Date: 20110831
  Serious: Yes (Death)
  Sender: FDA-Public Use
  Company Number: US-BAYER-200836345NA

PATIENT
  Sex: Male
  Weight: 131.52 kg

DRUGS (21)
  1. ISOSORBIDE MONONITRATE [Concomitant]
     Dosage: 200 MG, TID
     Route: 048
  2. DOPAMINE [Concomitant]
     Dosage: UNK
     Route: 042
     Dates: start: 20061018, end: 20061018
  3. HEPARIN SODIUM [Concomitant]
     Dosage: UNK
     Route: 042
     Dates: start: 20061018, end: 20061018
  4. ALBUMIN (HUMAN) [Concomitant]
  5. ACETYLSALICYLIC ACID SRT [Concomitant]
     Dosage: 81 MG, QD
     Route: 048
  6. ATENOLOL [Concomitant]
     Dosage: 100 MG, QD
     Route: 048
  7. LANTUS [Concomitant]
     Dosage: 40 U, QD
  8. NIFEDIPINE [Concomitant]
     Dosage: 60 MG, QD
     Route: 048
  9. WARFARIN [Concomitant]
     Dosage: 2.5 MG, QD
     Route: 048
     Dates: end: 20061011
  10. ZOCOR [Concomitant]
     Dosage: 40 MG, QD
     Route: 048
  11. AMIODARONE HCL [Concomitant]
     Dosage: UNK
     Route: 042
     Dates: start: 20061018, end: 20061018
  12. ESMOLOL [Concomitant]
     Dosage: UNK
     Route: 042
     Dates: start: 20061018, end: 20061018
  13. LASIX [Concomitant]
     Dosage: 40 MG, BID
     Route: 048
  14. NITROGLYCERIN [Concomitant]
  15. DILTIAZEM [Concomitant]
     Dosage: 180 MG, QD
     Route: 048
  16. EPINEPHRINE [Concomitant]
     Dosage: UNK
     Dates: start: 20061018, end: 20061018
  17. PLATELETS [Concomitant]
  18. TRASYLOL [Suspect]
     Indication: CORONARY ARTERY BYPASS
     Dosage: LOADING DOSE: 200CC FOLLOWED BY A 50CC/HR INFUSION
     Dates: start: 20061018, end: 20061018
  19. LISINOPRIL [Concomitant]
     Dosage: 40 MG, QD
     Route: 048
  20. GLUCOPHAGE [Concomitant]
     Dosage: 1000 MG, BID
     Route: 048
  21. NITROGLYCERIN [Concomitant]
     Dosage: UNK
     Route: 042
     Dates: start: 20061018, end: 20061018

REACTIONS (4)
  - EMOTIONAL DISTRESS [None]
  - RENAL FAILURE [None]
  - INJURY [None]
  - ANXIETY [None]
